FAERS Safety Report 11723141 (Version 1)
Quarter: 2015Q4

REPORT INFORMATION
  Report Type: Spontaneous
  Country: PL (occurrence: PL)
  Receive Date: 20151111
  Receipt Date: 20151111
  Transmission Date: 20160304
  Serious: Yes (Other)
  Sender: FDA-Public Use
  Company Number: PL-PFIZER INC-2015375153

PATIENT
  Age: 67 Year
  Sex: Male
  Weight: 65 kg

DRUGS (3)
  1. ACIDUM FOLICUM [Concomitant]
     Active Substance: FOLIC ACID
     Indication: PSORIATIC ARTHROPATHY
     Dosage: 15 MG, 1X/DAY
     Route: 048
     Dates: start: 201402
  2. SULFASALAZINE. [Suspect]
     Active Substance: SULFASALAZINE
     Indication: PSORIATIC ARTHROPATHY
     Dosage: DAILY DOSE: 3 G
     Route: 048
     Dates: start: 20140528, end: 20140630
  3. METHOTREXATE [Concomitant]
     Active Substance: METHOTREXATE
     Indication: PSORIATIC ARTHROPATHY
     Dosage: 25 MG, WEEKLY
     Route: 048
     Dates: start: 201402

REACTIONS (3)
  - Psoriasis [Unknown]
  - Condition aggravated [Unknown]
  - Product use issue [Unknown]
